FAERS Safety Report 21651146 (Version 1)
Quarter: 2022Q4

REPORT INFORMATION
  Report Type: Report from Study
  Country: US (occurrence: US)
  Receive Date: 20221128
  Receipt Date: 20221128
  Transmission Date: 20230112
  Serious: No
  Sender: FDA-Public Use
  Company Number: US-ABBVIE-4160060

PATIENT
  Age: 45 Year
  Sex: Female

DRUGS (1)
  1. HUMIRA [Suspect]
     Active Substance: ADALIMUMAB
     Indication: Crohn^s disease
     Dosage: STRENGTH: 40 MILLIGRAM
     Route: 058

REACTIONS (4)
  - Drug level decreased [Unknown]
  - Injection site pruritus [Unknown]
  - Crohn^s disease [Recovering/Resolving]
  - Injection site papule [Unknown]

NARRATIVE: CASE EVENT DATE: 20220801
